FAERS Safety Report 8229857-3 (Version None)
Quarter: 2012Q1

REPORT INFORMATION
  Report Type: 
  Country: None (occurrence: None)
  Receive Date: 20120323
  Receipt Date: 20120309
  Transmission Date: 20120608
  Serious: Yes (Other)
  Sender: FDA-Public Use
  Company Number: BR-AMGEN-BRASP2012017798

PATIENT
  Age: 59 Year
  Sex: Female
  Weight: 56 kg

DRUGS (2)
  1. ENBREL [Suspect]
     Indication: RHEUMATOID ARTHRITIS
     Dosage: 50 MG, WEEKLY
     Route: 058
     Dates: start: 20081201, end: 20111201
  2. ENBREL [Suspect]
     Dosage: UNK
     Dates: start: 20120101

REACTIONS (3)
  - DRY EYE [None]
  - BONE FRAGMENTATION [None]
  - DRY MOUTH [None]
